FAERS Safety Report 8501509-1 (Version None)
Quarter: 2012Q3

REPORT INFORMATION
  Report Type: 
  Country: None (occurrence: None)
  Receive Date: 20120710
  Receipt Date: 20120702
  Transmission Date: 20120928
  Serious: Yes (Other)
  Sender: FDA-Public Use
  Company Number: BR-ABBOTT-12P-020-0949996-00

PATIENT
  Sex: Male
  Weight: 93 kg

DRUGS (2)
  1. HUMIRA [Suspect]
     Dates: start: 20100414
  2. HUMIRA [Suspect]
     Indication: RHEUMATOID ARTHRITIS

REACTIONS (6)
  - ARTHRALGIA [None]
  - TENDON RUPTURE [None]
  - JOINT DISLOCATION [None]
  - JOINT SWELLING [None]
  - JOINT EFFUSION [None]
  - TENDON INJURY [None]
